FAERS Safety Report 24020002 (Version 1)
Quarter: 2024Q2

REPORT INFORMATION
  Report Type: Spontaneous
  Country: CN (occurrence: CN)
  Receive Date: 20240627
  Receipt Date: 20240627
  Transmission Date: 20240716
  Serious: Yes (Life-Threatening, Hospitalization)
  Sender: FDA-Public Use
  Company Number: None

PATIENT
  Age: 61 Year
  Sex: Male
  Weight: 50 kg

DRUGS (3)
  1. TRESIBA [Suspect]
     Active Substance: INSULIN DEGLUDEC
     Indication: Diabetes mellitus
     Dosage: 15 IU, QD
     Route: 058
     Dates: start: 20170501
  2. METFORMIN HYDROCHLORIDE [Suspect]
     Active Substance: METFORMIN HYDROCHLORIDE
     Indication: Diabetes mellitus
     Dosage: 0.5 MG, TID
     Route: 048
     Dates: start: 20170501
  3. INSULIN GLULISINE [Suspect]
     Active Substance: INSULIN GLULISINE
     Indication: Diabetes mellitus
     Dosage: 16 IU, TID
     Route: 058

REACTIONS (1)
  - Hypoglycaemic encephalopathy [Recovered/Resolved]

NARRATIVE: CASE EVENT DATE: 20240609
